FAERS Safety Report 15189809 (Version 1)
Quarter: 2018Q3

REPORT INFORMATION
  Report Type: Spontaneous
  Country: US (occurrence: US)
  Receive Date: 20180625
  Receipt Date: 20180625
  Transmission Date: 20181010
  Serious: Yes (Other)
  Sender: FDA-Public Use
  Company Number: None

PATIENT
  Age: 42 Year
  Sex: Female
  Weight: 107.5 kg

DRUGS (5)
  1. ISOTRETINOIN. [Concomitant]
     Active Substance: ISOTRETINOIN
  2. MULTIVITAMINS [Concomitant]
     Active Substance: VITAMINS
  3. MIRENA [Suspect]
     Active Substance: LEVONORGESTREL
     Indication: MENORRHAGIA
     Route: 067
     Dates: start: 20180508
  4. MIRENA [Suspect]
     Active Substance: LEVONORGESTREL
     Indication: IRON DEFICIENCY ANAEMIA
     Route: 067
     Dates: start: 20180508
  5. IRON INFUSIONS [Concomitant]
     Active Substance: IRON

REACTIONS (3)
  - Product label issue [None]
  - Alopecia [None]
  - Frustration tolerance decreased [None]

NARRATIVE: CASE EVENT DATE: 20180510
